FAERS Safety Report 19012788 (Version 1)
Quarter: 2021Q1

REPORT INFORMATION
  Report Type: Spontaneous
  Country: US (occurrence: US)
  Receive Date: 20210315
  Receipt Date: 20210315
  Transmission Date: 20210420
  Serious: Yes (Hospitalization)
  Sender: FDA-Public Use
  Company Number: US-TAKEDA-2021TUS016574

PATIENT
  Sex: Male
  Weight: 106 kg

DRUGS (12)
  1. CUVITRU [Suspect]
     Active Substance: HUMAN IMMUNOGLOBULIN G
     Indication: IMMUNODEFICIENCY COMMON VARIABLE
     Dosage: 40 GRAM, Q2WEEKS
     Route: 058
     Dates: start: 20201228
  2. TRAZODONE [Concomitant]
     Active Substance: TRAZODONE HYDROCHLORIDE
  3. ACETAMINOPHEN. [Concomitant]
     Active Substance: ACETAMINOPHEN
  4. DIPHENHYDRAMINE. [Concomitant]
     Active Substance: DIPHENHYDRAMINE
  5. VITAMIN B12 [Concomitant]
     Active Substance: CYANOCOBALAMIN
  6. TADALAFIL. [Concomitant]
     Active Substance: TADALAFIL
  7. ESCITALOPRAM [Concomitant]
     Active Substance: ESCITALOPRAM OXALATE
  8. LMX4 [Concomitant]
     Active Substance: LIDOCAINE
  9. COLOSTRUM [Concomitant]
     Active Substance: DIETARY SUPPLEMENT
  10. DHEA [Concomitant]
     Active Substance: PRASTERONE
  11. EPINEPHRINE. [Concomitant]
     Active Substance: EPINEPHRINE
  12. AMLODIPINE [Concomitant]
     Active Substance: AMLODIPINE BESYLATE

REACTIONS (3)
  - Fall [Unknown]
  - Localised infection [Unknown]
  - Product dose omission issue [Unknown]
